FAERS Safety Report 5067982-9 (Version None)
Quarter: 2006Q3

REPORT INFORMATION
  Report Type: 
  Country: None (occurrence: None)
  Receive Date: 20060802
  Receipt Date: 20060721
  Transmission Date: 20061208
  Serious: Yes (Other)
  Sender: FDA-Public Use
  Company Number: CA-ROCHE-456447

PATIENT
  Sex: Male

DRUGS (3)
  1. ACCUTANE [Suspect]
     Indication: DRUG USE FOR UNKNOWN INDICATION
     Route: 065
  2. TRIMIPRAMINE MALEATE [Suspect]
     Indication: DRUG USE FOR UNKNOWN INDICATION
     Route: 065
  3. FLUOXETINE [Suspect]
     Indication: DRUG USE FOR UNKNOWN INDICATION
     Route: 065

REACTIONS (9)
  - AFFECT LABILITY [None]
  - AGGRESSION [None]
  - AMNESIA [None]
  - DEPRESSION [None]
  - IRRITABILITY [None]
  - MANIA [None]
  - SUICIDAL IDEATION [None]
  - SUICIDE ATTEMPT [None]
  - THINKING ABNORMAL [None]
